FAERS Safety Report 12438733 (Version 5)
Quarter: 2016Q3

REPORT INFORMATION
  Report Type: Spontaneous
  Country: US (occurrence: US)
  Receive Date: 20160606
  Receipt Date: 20160805
  Transmission Date: 20161109
  Serious: Yes (Other)
  Sender: FDA-Public Use
  Company Number: US-JNJFOC-20160600540

PATIENT
  Age: 58 Year
  Sex: Male
  Weight: 102.06 kg

DRUGS (2)
  1. METROGEL [Concomitant]
     Active Substance: METRONIDAZOLE
     Dosage: APPLY TO THE AFFECTED AREA OF THE FACE ONCE DAILY; RUB IN GENTLLY AND COMPLETELY.
     Route: 061
  2. XARELTO [Suspect]
     Active Substance: RIVAROXABAN
     Indication: DEEP VEIN THROMBOSIS
     Route: 048
     Dates: start: 20140321, end: 20160528

REACTIONS (3)
  - Venous thrombosis [Recovering/Resolving]
  - Deep vein thrombosis [Recovering/Resolving]
  - Thrombosis [Recovering/Resolving]

NARRATIVE: CASE EVENT DATE: 20160522
